FAERS Safety Report 9601235 (Version 1)
Quarter: 2013Q4

REPORT INFORMATION
  Report Type: Spontaneous
  Country: SE (occurrence: SE)
  Receive Date: 20131005
  Receipt Date: 20131005
  Transmission Date: 20140711
  Serious: Yes (Hospitalization)
  Sender: FDA-Public Use
  Company Number: SE-TEVA-433994ISR

PATIENT
  Age: 90 Year
  Sex: Female

DRUGS (4)
  1. OXASCAND [Suspect]
  2. RISPERDAL [Concomitant]
     Route: 065
  3. ATARAX [Concomitant]
     Route: 065
  4. LANEXAT [Concomitant]
     Route: 042

REACTIONS (4)
  - Depressed level of consciousness [Recovered/Resolved]
  - Dysphagia [Recovered/Resolved]
  - Muscular weakness [Recovered/Resolved]
  - Nervous system disorder [Recovered/Resolved]
